FAERS Safety Report 17063869 (Version 1)
Quarter: 2019Q4

REPORT INFORMATION
  Report Type: Spontaneous
  Country: US (occurrence: US)
  Receive Date: 20191023
  Receipt Date: 20191023
  Transmission Date: 20200122
  Serious: Yes (Hospitalization)
  Sender: FDA-Public Use
  Company Number: None

PATIENT
  Age: 60 Year
  Sex: Male
  Weight: 73 kg

DRUGS (1)
  1. IODINE DYE [Suspect]
     Active Substance: IODINE

REACTIONS (4)
  - Emotional distress [None]
  - Swollen tongue [None]
  - Lip swelling [None]
  - Pharyngeal swelling [None]

NARRATIVE: CASE EVENT DATE: 20191018
